FAERS Safety Report 20280835 (Version 1)
Quarter: 2022Q1

REPORT INFORMATION
  Report Type: Spontaneous
  Country: US (occurrence: US)
  Receive Date: 20220103
  Receipt Date: 20220103
  Transmission Date: 20220424
  Serious: Yes (Death, Other)
  Sender: FDA-Public Use
  Company Number: US-SA-SAC20211230001276

PATIENT

DRUGS (2)
  1. ZANTAC [Suspect]
     Active Substance: RANITIDINE HYDROCHLORIDE
     Dosage: UNK
     Dates: start: 201704, end: 202004
  2. RANITIDINE HYDROCHLORIDE [Suspect]
     Active Substance: RANITIDINE HYDROCHLORIDE
     Dosage: UNK
     Dates: start: 201704, end: 202004

REACTIONS (5)
  - Colorectal cancer [Unknown]
  - Appendix cancer [Unknown]
  - Gastrointestinal carcinoma [Unknown]
  - Malignant peritoneal neoplasm [Unknown]
  - Death [Fatal]

NARRATIVE: CASE EVENT DATE: 20200801
